FAERS Safety Report 25907273 (Version 2)
Quarter: 2025Q4

REPORT INFORMATION
  Report Type: Report from Study
  Country: EU (occurrence: EU)
  Receive Date: 20251010
  Receipt Date: 20251126
  Transmission Date: 20260118
  Serious: Yes (Other)
  Sender: JOHNSON AND JOHNSON
  Company Number: EU-JNJFOC-20250822409

PATIENT
  Age: 67 Year
  Sex: Female

DRUGS (1)
  1. TECLISTAMAB [Suspect]
     Active Substance: TECLISTAMAB
     Indication: Plasma cell myeloma refractory
     Route: 065
     Dates: start: 20240306

REACTIONS (5)
  - Gastroenteritis salmonella [Recovered/Resolved]
  - Mycoplasma infection [Recovered/Resolved]
  - Viral infection [Unknown]
  - Upper respiratory tract infection [Recovered/Resolved with Sequelae]
  - Bacterial infection [Recovered/Resolved]

NARRATIVE: CASE EVENT DATE: 20240430
